FAERS Safety Report 4776880-7 (Version None)
Quarter: 2005Q3

REPORT INFORMATION
  Report Type: 
  Country: None (occurrence: None)
  Receive Date: 20050923
  Receipt Date: 20050721
  Transmission Date: 20060218
  Serious: Yes (Hospitalization)
  Sender: FDA-Public Use
  Company Number: GB-BRISTOL-MYERS SQUIBB COMPANY-13054648

PATIENT
  Age: 73 Year
  Sex: Male

DRUGS (3)
  1. CETUXIMAB [Suspect]
     Indication: NON-SMALL CELL LUNG CANCER
     Dosage: DELAYED ON 21-JUL-05.
     Route: 041
     Dates: start: 20050715
  2. CISPLATIN [Suspect]
     Indication: NON-SMALL CELL LUNG CANCER
     Dosage: REDUCED TO 60 MG/M2
     Route: 042
     Dates: start: 20050715
  3. VINORELBINE [Suspect]
     Indication: NON-SMALL CELL LUNG CANCER
     Dosage: DOSE REDUCED TO 25 MG/M2
     Route: 042
     Dates: start: 20050715

REACTIONS (1)
  - LOWER RESPIRATORY TRACT INFECTION [None]
